FAERS Safety Report 18248405 (Version 2)
Quarter: 2023Q2

REPORT INFORMATION
  Report Type: Spontaneous
  Country: CA (occurrence: CA)
  Receive Date: 20200909
  Receipt Date: 20230405
  Transmission Date: 20230721
  Serious: Yes (Life-Threatening)
  Sender: FDA-Public Use
  Company Number: CA-009507513-2009CAN003031

PATIENT
  Age: 67 Year
  Sex: Male

DRUGS (1)
  1. ONCOTICE [Suspect]
     Active Substance: BACILLUS CALMETTE-GUERIN SUBSTRAIN TICE LIVE ANTIGEN
     Dosage: 50 MILLIGRAM
     Route: 043
     Dates: start: 20191004, end: 20191004

REACTIONS (3)
  - Metastatic lymphoma [Unknown]
  - Procedural haemorrhage [Unknown]
  - Infective aneurysm [Unknown]

NARRATIVE: CASE EVENT DATE: 20200206
